FAERS Safety Report 25151874 (Version 2)
Quarter: 2025Q3

REPORT INFORMATION
  Report Type: Spontaneous
  Country: CN (occurrence: CN)
  Receive Date: 20250402
  Receipt Date: 20250803
  Transmission Date: 20251021
  Serious: Yes (Other)
  Sender: ALEXION PHARMACEUTICALS
  Company Number: CN-ASTRAZENECA-202503GLO028134CN

PATIENT
  Age: 67 Year
  Sex: Female

DRUGS (6)
  1. OLAPARIB [Suspect]
     Active Substance: OLAPARIB
     Indication: BRCA2 gene mutation
     Dosage: 150 MILLIGRAM, QD
     Dates: start: 202106
  2. OLAPARIB [Suspect]
     Active Substance: OLAPARIB
     Indication: Lung adenocarcinoma
     Dosage: 300 MILLIGRAM, QD
  3. OLAPARIB [Suspect]
     Active Substance: OLAPARIB
     Indication: Metastases to meninges
  4. OSIMERTINIB [Suspect]
     Active Substance: OSIMERTINIB
     Indication: Lung neoplasm malignant
     Dosage: 80 MILLIGRAM, QD
  5. CATEQUENTINIB [Suspect]
     Active Substance: CATEQUENTINIB
     Indication: Lung neoplasm malignant
     Dosage: 12 MILLIGRAM, Q3W, D1-14
  6. AUMOLERTINIB [Concomitant]
     Active Substance: AUMOLERTINIB
     Indication: Lung neoplasm malignant
     Dosage: 110 MILLIGRAM, QD

REACTIONS (2)
  - Myelosuppression [Unknown]
  - Diarrhoea [Unknown]
